FAERS Safety Report 9687248 (Version 4)
Quarter: 2014Q1

REPORT INFORMATION
  Report Type: Report from Study
  Country: CA (occurrence: CA)
  Receive Date: 20131113
  Receipt Date: 20140312
  Transmission Date: 20141002
  Serious: Yes (Other)
  Sender: FDA-Public Use
  Company Number: CA-ROCHE-1193666

PATIENT
  Age: 55 Year
  Sex: Male
  Weight: 82.7 kg

DRUGS (4)
  1. ACTEMRA [Suspect]
     Indication: RHEUMATOID ARTHRITIS
     Route: 042
     Dates: start: 20100831, end: 20130926
  2. ATORVASTATIN [Concomitant]
  3. LEFLUNOMIDE [Concomitant]
  4. PREDNISONE [Concomitant]

REACTIONS (8)
  - Upper limb fracture [Unknown]
  - Fatigue [Recovering/Resolving]
  - Finger deformity [Recovering/Resolving]
  - Malaise [Not Recovered/Not Resolved]
  - Local swelling [Recovering/Resolving]
  - Lower respiratory tract infection [Unknown]
  - Pain [Recovering/Resolving]
  - Lung infection [Not Recovered/Not Resolved]
